FAERS Safety Report 5355200-3 (Version None)
Quarter: 2007Q2

REPORT INFORMATION
  Report Type: 
  Country: None (occurrence: None)
  Receive Date: 20070611
  Receipt Date: 20070531
  Transmission Date: 20071010
  Serious: Yes (Hospitalization, Disabling)
  Sender: FDA-Public Use
  Company Number: WAES 0704USA05226

PATIENT
  Age: 79 Year
  Sex: Male

DRUGS (14)
  1. CAP VORINOSTAT 100 MG [Suspect]
     Indication: NON-SMALL CELL LUNG CANCER
     Dosage: SEE IMAGE
     Route: 048
     Dates: start: 20070116, end: 20070212
  2. CAP VORINOSTAT 100 MG [Suspect]
     Indication: NON-SMALL CELL LUNG CANCER
     Dosage: SEE IMAGE
     Route: 048
     Dates: start: 20070213, end: 20070312
  3. CAP VORINOSTAT 100 MG [Suspect]
     Indication: NON-SMALL CELL LUNG CANCER
     Dosage: SEE IMAGE
     Route: 048
     Dates: start: 20070313, end: 20070409
  4. CAP VORINOSTAT 100 MG [Suspect]
     Indication: NON-SMALL CELL LUNG CANCER
     Dosage: SEE IMAGE
     Route: 048
     Dates: start: 20070410, end: 20070418
  5. ERLOTINIB HYDROCHLORIDE 150 MG [Suspect]
     Indication: NON-SMALL CELL LUNG CANCER
     Dosage: SEE IMAGE
     Route: 048
     Dates: start: 20070116, end: 20070212
  6. ERLOTINIB HYDROCHLORIDE 150 MG [Suspect]
     Indication: NON-SMALL CELL LUNG CANCER
     Dosage: SEE IMAGE
     Route: 048
     Dates: start: 20070213, end: 20070312
  7. ERLOTINIB HYDROCHLORIDE 150 MG [Suspect]
     Indication: NON-SMALL CELL LUNG CANCER
     Dosage: SEE IMAGE
     Route: 048
     Dates: start: 20070313, end: 20070409
  8. ERLOTINIB HYDROCHLORIDE 150 MG [Suspect]
     Indication: NON-SMALL CELL LUNG CANCER
     Dosage: SEE IMAGE
     Route: 048
     Dates: start: 20070410, end: 20070418
  9. BETOPTIC S [Concomitant]
  10. COLACE [Concomitant]
  11. LUMIGAN [Concomitant]
  12. MILK OF MAGNESIA TAB [Concomitant]
  13. REFRESH TEARS LUBRICANT EYE DROP [Concomitant]
  14. TRUSOPT [Concomitant]

REACTIONS (17)
  - ANAEMIA [None]
  - ANOREXIA [None]
  - BLOOD CULTURE POSITIVE [None]
  - BLOOD POTASSIUM DECREASED [None]
  - CONJUNCTIVAL DISORDER [None]
  - CULTURE URINE POSITIVE [None]
  - DEHYDRATION [None]
  - ESCHERICHIA INFECTION [None]
  - FAECAL INCONTINENCE [None]
  - HAEMOGLOBIN DECREASED [None]
  - LETHARGY [None]
  - LOSS OF CONSCIOUSNESS [None]
  - OEDEMA PERIPHERAL [None]
  - PUPILLARY DISORDER [None]
  - PYREXIA [None]
  - SEPSIS [None]
  - WHITE BLOOD CELL COUNT INCREASED [None]
